FAERS Safety Report 6341899-1 (Version None)
Quarter: 2009Q3

REPORT INFORMATION
  Report Type: 
  Country: None (occurrence: None)
  Receive Date: 20090903
  Receipt Date: 20090827
  Transmission Date: 20100115
  Serious: Yes (Death)
  Sender: FDA-Public Use
  Company Number: 2007JP000773

PATIENT
  Age: 32 Year
  Sex: Male
  Weight: 67 kg

DRUGS (22)
  1. PROGRAF [Suspect]
     Indication: LUNG TRANSPLANT
     Dosage: SEE IMAGE
     Route: 048
     Dates: start: 20050726, end: 20061028
  2. PROGRAF [Suspect]
     Indication: LUNG TRANSPLANT
     Dosage: SEE IMAGE
     Route: 048
     Dates: start: 20061104
  3. PROGRAF [Suspect]
     Indication: LUNG TRANSPLANT
     Dosage: SEE IMAGE
     Route: 048
     Dates: start: 20061127
  4. PROGRAF [Suspect]
     Indication: LUNG TRANSPLANT
     Dosage: SEE IMAGE
     Route: 048
     Dates: start: 20070104
  5. PROGRAF [Suspect]
     Indication: LUNG TRANSPLANT
     Dosage: SEE IMAGE
     Route: 048
     Dates: start: 20070409
  6. PROGRAF [Suspect]
     Indication: LUNG TRANSPLANT
     Dosage: 0.965 MG, BID, IV NOS
     Route: 042
     Dates: start: 20061029, end: 20061104
  7. CELLCEPT [Suspect]
     Indication: LUNG TRANSPLANT
     Dosage: 2000 MG, ORAL
     Route: 048
     Dates: start: 20061029, end: 20070630
  8. METHYLPREDNISOLONE [Suspect]
     Indication: LUNG TRANSPLANT
     Dosage: 375 MG, IV NOS
     Route: 042
     Dates: start: 20061028, end: 20061030
  9. PREDNISOLONE [Suspect]
     Indication: ACUTE GRAFT VERSUS HOST DISEASE
     Dosage: 15 MG, ORAL; 60 MG, ORAL
     Route: 048
     Dates: start: 20061030, end: 20070605
  10. PROCATEROL HCL [Concomitant]
  11. SEREVENT [Concomitant]
  12. CICLOSPORIN FORMULATION UNKNOWN [Concomitant]
  13. METHOTREXATE FORMULATION UNKNOWN [Concomitant]
  14. OMEPRAL INJECTION [Concomitant]
  15. LANSOPRAZOLE [Concomitant]
  16. CEFTAZIDIME [Concomitant]
  17. DALACIN INJECTION [Concomitant]
  18. DENOSINE (GANCICLOVIR) INJECTION [Concomitant]
  19. ELASPOL (SIVELESTAT) INJECTION [Concomitant]
  20. DIFLUCAN [Concomitant]
  21. BAKTAR (SULFAMETHOXAZOLE, TRIMETHOPRIM) PER ORAL NOS [Concomitant]
  22. MITOMYCIN [Concomitant]

REACTIONS (21)
  - ACARODERMATITIS [None]
  - ARRHYTHMIA [None]
  - BONE MARROW DISORDER [None]
  - CYTOMEGALOVIRUS INFECTION [None]
  - EPSTEIN-BARR VIRUS ASSOCIATED LYMPHOPROLIFERATIVE DISORDER [None]
  - INFECTION IN AN IMMUNOCOMPROMISED HOST [None]
  - INTRACARDIAC MASS [None]
  - LIVER DISORDER [None]
  - LYMPHOCYTIC INFILTRATION [None]
  - MALAISE [None]
  - NERVOUS SYSTEM DISORDER [None]
  - OESOPHAGEAL CANDIDIASIS [None]
  - PERICARDIAL DISEASE [None]
  - PSEUDOMONAS INFECTION [None]
  - PULMONARY EMBOLISM [None]
  - PULMONARY HAEMORRHAGE [None]
  - RENAL DISORDER [None]
  - STAPHYLOCOCCAL INFECTION [None]
  - T-CELL LYMPHOMA RECURRENT [None]
  - TACHYCARDIA [None]
  - TREMOR [None]
